FAERS Safety Report 14489987 (Version 1)
Quarter: 2018Q1

REPORT INFORMATION
  Report Type: Spontaneous
  Country: DE (occurrence: DE)
  Receive Date: 20180206
  Receipt Date: 20180206
  Transmission Date: 20180509
  Serious: Yes (Other)
  Sender: FDA-Public Use
  Company Number: DE-ROCHE-2062304

PATIENT
  Age: 67 Year
  Sex: Female

DRUGS (2)
  1. MABTHERA [Suspect]
     Active Substance: RITUXIMAB
     Indication: B-CELL LYMPHOMA
     Route: 065
     Dates: start: 201607, end: 201711
  2. MABTHERA [Suspect]
     Active Substance: RITUXIMAB
     Indication: NON-HODGKIN^S LYMPHOMA

REACTIONS (4)
  - Cerebrovascular accident [Unknown]
  - Hemiparesis [Unknown]
  - Progressive multifocal leukoencephalopathy [Unknown]
  - Language disorder [Unknown]

NARRATIVE: CASE EVENT DATE: 201711
